FAERS Safety Report 6168819-7 (Version None)
Quarter: 2009Q2

REPORT INFORMATION
  Report Type: 
  Country: None (occurrence: None)
  Receive Date: 20090424
  Receipt Date: 20090424
  Transmission Date: 20091009
  Serious: Yes (Disabling)
  Sender: FDA-Public Use
  Company Number: None

PATIENT
  Sex: Male
  Weight: 75.91 kg

DRUGS (3)
  1. VERAPAMIL [Suspect]
     Dosage: 180MG TABLET SA 180 MG QD ORAL
     Route: 048
     Dates: start: 20070926, end: 20090423
  2. COUMADIN [Concomitant]
  3. FUROSEMIDE [Concomitant]

REACTIONS (1)
  - OEDEMA [None]
